FAERS Safety Report 13853809 (Version 4)
Quarter: 2017Q3

REPORT INFORMATION
  Report Type: Report from Study
  Country: AU (occurrence: AU)
  Receive Date: 20170809
  Receipt Date: 20170927
  Transmission Date: 20171127
  Serious: Yes (Hospitalization)
  Sender: FDA-Public Use
  Company Number: AU-BRISTOL-MYERS SQUIBB COMPANY-BMS-2017-067532

PATIENT
  Age: 72 Year
  Sex: Male

DRUGS (3)
  1. NIVOLUMAB [Suspect]
     Active Substance: NIVOLUMAB
     Indication: PRODUCT USED FOR UNKNOWN INDICATION
     Dosage: 3 MG/KG, UNK
     Route: 065
     Dates: start: 20170622
  2. NIVOLUMAB [Suspect]
     Active Substance: NIVOLUMAB
     Indication: PLEURAL MESOTHELIOMA
     Dosage: UNK UNK, Q2WK
     Route: 042
     Dates: start: 20170622
  3. IPILIMUMAB [Suspect]
     Active Substance: IPILIMUMAB
     Indication: PLEURAL MESOTHELIOMA
     Dosage: 71 MG, UNK
     Route: 042
     Dates: start: 20170622, end: 20170622

REACTIONS (1)
  - Myositis [Recovered/Resolved]

NARRATIVE: CASE EVENT DATE: 20170728
